FAERS Safety Report 8439598-5 (Version None)
Quarter: 2012Q2

REPORT INFORMATION
  Report Type: 
  Country: None (occurrence: None)
  Receive Date: 20120615
  Receipt Date: 20120613
  Transmission Date: 20120825
  Serious: Yes (Life-Threatening, Hospitalization)
  Sender: FDA-Public Use
  Company Number: BE-GENZYME-CLOF-1002120

PATIENT
  Sex: Male
  Weight: 76 kg

DRUGS (3)
  1. IDARUBICIN HCL [Suspect]
     Indication: ACUTE LEUKAEMIA
     Dosage: 23.5 MG, UNK
     Route: 042
     Dates: start: 20120328, end: 20120330
  2. CLOFARABINE [Suspect]
     Indication: ACUTE LEUKAEMIA
     Dosage: 19.6 MG, UNK
     Route: 042
     Dates: start: 20120328, end: 20120401
  3. CYTARABINE [Suspect]
     Indication: ACUTE LEUKAEMIA
     Dosage: 391 MG, UNK
     Route: 042
     Dates: start: 20120328, end: 20120403

REACTIONS (1)
  - ACUTE RESPIRATORY DISTRESS SYNDROME [None]
